FAERS Safety Report 8960741 (Version 3)
Quarter: 2013Q1

REPORT INFORMATION
  Report Type: Spontaneous
  Country: US (occurrence: US)
  Receive Date: 20121212
  Receipt Date: 20130304
  Transmission Date: 20140127
  Serious: No
  Sender: FDA-Public Use
  Company Number: US-PFIZER INC-2012309928

PATIENT
  Age: 89 Year
  Sex: Female
  Weight: 60.77 kg

DRUGS (14)
  1. ARTHROTEC [Suspect]
     Indication: ARTHRALGIA
     Dosage: 200UG/50MG, 2X/DAY
     Route: 048
     Dates: start: 20121124, end: 20121206
  2. ENALAPRIL [Concomitant]
     Indication: BLOOD PRESSURE ABNORMAL
     Dosage: 5 MG, DAILY
     Dates: start: 200809
  3. ENALAPRIL [Concomitant]
     Indication: CARDIAC DISORDER
     Dosage: UNK
     Dates: start: 200809
  4. ENALAPRIL [Concomitant]
     Indication: HYPERTENSION
  5. ATENOLOL [Concomitant]
     Indication: HYPERTENSION
     Dosage: 25 MG, 1X/DAY
     Route: 048
     Dates: start: 200011
  6. CADUET [Concomitant]
     Indication: HYPERTENSION
     Dosage: 1 DF, 1X/DAY
     Route: 048
     Dates: start: 200706
  7. CADUET [Concomitant]
     Indication: BLOOD CHOLESTEROL INCREASED
  8. COUMADIN [Concomitant]
     Indication: ATRIAL FIBRILLATION
     Dosage: UNK
     Dates: start: 200505
  9. SIMVASTATIN [Concomitant]
     Indication: BLOOD CHOLESTEROL INCREASED
     Dosage: UNK
     Dates: start: 201210
  10. VICODIN [Concomitant]
     Indication: PAIN
     Dosage: UNK
     Dates: start: 200912
  11. SPIRONOLACTONE [Concomitant]
     Indication: HYPERTENSION
     Dosage: UNK
     Dates: start: 201210
  12. AMBIEN [Concomitant]
     Indication: INSOMNIA
     Dosage: 10 MG, 1X/DAY
     Dates: start: 200505
  13. LASIX [Concomitant]
     Indication: HYPERTENSION
     Dosage: UNK
     Dates: start: 201111
  14. GLUCOSAMINE [Concomitant]
     Dosage: UNK

REACTIONS (4)
  - Eye swelling [Recovered/Resolved]
  - Dyspnoea [Recovered/Resolved]
  - Pain [Recovered/Resolved]
  - Nausea [Recovered/Resolved]
